FAERS Safety Report 4526443-3 (Version None)
Quarter: 2004Q4

REPORT INFORMATION
  Report Type: 
  Country: None (occurrence: None)
  Receive Date: 20041214
  Receipt Date: 20041209
  Transmission Date: 20050328
  Serious: Yes (Life-Threatening, Hospitalization)
  Sender: FDA-Public Use
  Company Number: ES-MERCK-0412ESP00019

PATIENT
  Age: 45 Year
  Sex: Male

DRUGS (6)
  1. ENOXAPARIN SODIUM [Suspect]
     Indication: ARRHYTHMIA SUPRAVENTRICULAR
     Route: 058
     Dates: start: 20040705
  2. METHOTREXATE [Concomitant]
     Indication: SPONDYLOSIS
     Route: 042
  3. DIGOXIN [Concomitant]
     Indication: ARRHYTHMIA SUPRAVENTRICULAR
     Route: 048
     Dates: start: 20040705
  4. LEUCOVORIN CALCIUM [Concomitant]
     Route: 048
  5. INDOCIN [Suspect]
     Indication: SPONDYLOSIS
     Route: 048
     Dates: end: 20040712
  6. RABEPRAZOLE SODIUM [Concomitant]
     Indication: GASTRIC ULCER
     Route: 048
     Dates: start: 20030101

REACTIONS (5)
  - DRUG INTERACTION [None]
  - GASTROINTESTINAL HAEMORRHAGE [None]
  - HAEMATOCRIT DECREASED [None]
  - HAEMOGLOBIN DECREASED [None]
  - OESOPHAGITIS [None]
